FAERS Safety Report 18125199 (Version 1)
Quarter: 2020Q3

REPORT INFORMATION
  Report Type: Spontaneous
  Country: CN (occurrence: CN)
  Receive Date: 20200807
  Receipt Date: 20200807
  Transmission Date: 20201103
  Serious: Yes (Other)
  Sender: FDA-Public Use
  Company Number: NVSC2020CN219828

PATIENT
  Age: 52 Year
  Sex: Male

DRUGS (1)
  1. CYCLOSPORINE. [Suspect]
     Active Substance: CYCLOSPORINE
     Indication: MARGINAL ZONE LYMPHOMA
     Dosage: 5 MG/KG, QD 3 TO 5 MG/KG/D
     Route: 065

REACTIONS (4)
  - Liver injury [Unknown]
  - Malignant neoplasm progression [Unknown]
  - Marginal zone lymphoma [Unknown]
  - Product use in unapproved indication [Unknown]
